FAERS Safety Report 12897962 (Version 1)
Quarter: 2016Q4

REPORT INFORMATION
  Report Type: Spontaneous
  Country: US (occurrence: US)
  Receive Date: 20161028
  Receipt Date: 20161028
  Transmission Date: 20170207
  Serious: No
  Sender: FDA-Public Use
  Company Number: None

PATIENT
  Age: 61 Year
  Sex: Female

DRUGS (1)
  1. HUMIRA [Suspect]
     Active Substance: ADALIMUMAB
     Indication: RHEUMATOID ARTHRITIS
     Route: 058
     Dates: start: 20160629

REACTIONS (4)
  - Nausea [None]
  - Hypophagia [None]
  - Death of relative [None]
  - Abnormal loss of weight [None]

NARRATIVE: CASE EVENT DATE: 20160701
